FAERS Safety Report 19284725 (Version 2)
Quarter: 2022Q4

REPORT INFORMATION
  Report Type: Spontaneous
  Country: KR (occurrence: KR)
  Receive Date: 20210521
  Receipt Date: 20221111
  Transmission Date: 20230112
  Serious: Yes (Other)
  Sender: FDA-Public Use
  Company Number: KR-GLAXOSMITHKLINE-KR2021APC103341

PATIENT

DRUGS (2)
  1. REQUIP [Suspect]
     Active Substance: ROPINIROLE HYDROCHLORIDE
     Indication: Parkinson^s disease
     Dosage: 2 MG, QD, ONCE IN MORNING
     Route: 048
     Dates: start: 20210511, end: 20210511
  2. MIRAPEX [Concomitant]
     Active Substance: PRAMIPEXOLE DIHYDROCHLORIDE
     Indication: Product used for unknown indication
     Dosage: 1 MG
     Dates: end: 20210510

REACTIONS (10)
  - Parkinson^s disease [Recovered/Resolved]
  - Fear [Recovered/Resolved]
  - Ocular discomfort [Recovered/Resolved]
  - Daydreaming [Recovered/Resolved]
  - Palpitations [Recovered/Resolved]
  - Eye movement disorder [Recovered/Resolved]
  - Mental disorder [Recovered/Resolved]
  - Product availability issue [Unknown]
  - Extra dose administered [Unknown]
  - Incorrect dose administered [Unknown]

NARRATIVE: CASE EVENT DATE: 20210511
